FAERS Safety Report 4427557-9 (Version None)
Quarter: 2004Q3

REPORT INFORMATION
  Report Type: 
  Country: None (occurrence: None)
  Receive Date: 20040817
  Receipt Date: 20020703
  Transmission Date: 20050211
  Serious: Yes (Hospitalization, Disabling, Other)
  Sender: FDA-Public Use
  Company Number: US-MERCK-0207USA00488

PATIENT
  Age: 40 Year
  Sex: Female
  Weight: 68 kg

DRUGS (28)
  1. RANITIDINE [Concomitant]
     Indication: GASTROOESOPHAGEAL REFLUX DISEASE
     Route: 065
     Dates: end: 20010701
  2. VIOXX [Suspect]
     Indication: BACK PAIN
     Route: 048
     Dates: start: 20001101, end: 20010707
  3. VIOXX [Suspect]
     Indication: ARTHRITIS
     Route: 048
     Dates: start: 20001101, end: 20010707
  4. TEMAZEPAM [Concomitant]
     Indication: ANXIETY
     Route: 065
  5. TRAZODONE HYDROCHLORIDE [Concomitant]
     Route: 065
  6. EFFEXOR XR [Concomitant]
     Indication: DEPRESSION
     Route: 065
  7. AMBIEN [Concomitant]
     Route: 065
  8. TYLENOL [Concomitant]
     Route: 065
  9. VICODIN [Concomitant]
     Indication: BACK INJURY
     Route: 065
  10. AMOXICILLIN [Concomitant]
     Route: 065
  11. ASPIRIN [Concomitant]
     Route: 065
  12. TENORMIN [Concomitant]
     Route: 065
     Dates: start: 20010604
  13. ZITHROMAX [Concomitant]
     Route: 065
  14. WELLBUTRIN [Concomitant]
     Route: 065
  15. CELEXA [Concomitant]
     Route: 065
     Dates: end: 20011101
  16. PLAVIX [Concomitant]
     Route: 065
  17. BENADRYL [Concomitant]
     Indication: INSOMNIA
     Route: 065
  18. PREMARIN [Concomitant]
     Route: 065
  19. NEURONTIN [Concomitant]
     Route: 065
  20. GLUCOSAMINE [Concomitant]
     Route: 065
  21. HYPERICIN [Concomitant]
     Route: 065
  22. IBUPROFEN [Concomitant]
     Route: 065
  23. CLARITIN [Concomitant]
     Route: 065
  24. ATIVAN [Concomitant]
     Route: 065
     Dates: end: 20010701
  25. MECLIZINE [Concomitant]
     Route: 065
  26. SKELAXIN [Concomitant]
     Indication: BACK INJURY
     Route: 065
  27. UNIVASC [Concomitant]
     Indication: HYPERTENSION
     Route: 065
     Dates: start: 20010611, end: 20010701
  28. NAPROXEN [Concomitant]
     Route: 065

REACTIONS (47)
  - ADVERSE EVENT [None]
  - APHASIA [None]
  - ASTHENIA [None]
  - ATAXIA [None]
  - BALANCE DISORDER [None]
  - BLOOD CHOLESTEROL INCREASED [None]
  - BLOOD TESTOSTERONE DECREASED [None]
  - BLOOD TRIGLYCERIDES INCREASED [None]
  - CEREBROVASCULAR ACCIDENT [None]
  - CONFUSIONAL STATE [None]
  - COORDINATION ABNORMAL [None]
  - DELUSION [None]
  - DIFFICULTY IN WALKING [None]
  - DISTURBANCE IN ATTENTION [None]
  - DIZZINESS [None]
  - EAR PAIN [None]
  - ENCEPHALITIS VIRAL [None]
  - FACIAL PAIN [None]
  - FALL [None]
  - GAIT DISTURBANCE [None]
  - HEADACHE [None]
  - HEMIPARESIS [None]
  - HYPERTENSION [None]
  - HYPOAESTHESIA [None]
  - HYPOAESTHESIA ORAL [None]
  - HYPONATRAEMIA [None]
  - JOINT SPRAIN [None]
  - LABYRINTHITIS [None]
  - MENTAL DISORDER [None]
  - MENTAL DISORDER DUE TO A GENERAL MEDICAL CONDITION [None]
  - MIGRAINE [None]
  - MUSCLE SPASMS [None]
  - MUSCULAR WEAKNESS [None]
  - NEURALGIA [None]
  - NUCLEAR MAGNETIC RESONANCE IMAGING BRAIN ABNORMAL [None]
  - OTITIS MEDIA [None]
  - PARAESTHESIA [None]
  - PHOTOPHOBIA [None]
  - POLYNEUROPATHY [None]
  - RESPIRATORY RATE INCREASED [None]
  - SENSORY DISTURBANCE [None]
  - TEMPOROMANDIBULAR JOINT SYNDROME [None]
  - TINNITUS [None]
  - TRANSIENT ISCHAEMIC ATTACK [None]
  - TRI-IODOTHYRONINE FREE INCREASED [None]
  - VERTIGO [None]
  - VOMITING [None]
